FAERS Safety Report 13143713 (Version 1)
Quarter: 2017Q1

REPORT INFORMATION
  Report Type: Spontaneous
  Country: CH (occurrence: CH)
  Receive Date: 20170124
  Receipt Date: 20170124
  Transmission Date: 20170428
  Serious: Yes (Hospitalization)
  Sender: FDA-Public Use
  Company Number: CH-BAYER-2016-237731

PATIENT
  Age: 65 Year
  Sex: Male
  Weight: 96 kg

DRUGS (30)
  1. NOVALGINA [Suspect]
     Active Substance: METAMIZOLE SODIUM
     Dosage: 500 MG, BID
     Dates: start: 20161019, end: 20161025
  2. COVERSUM COMBI [Concomitant]
     Active Substance: INDAPAMIDE
     Dosage: 5 MG, QD
     Route: 048
     Dates: start: 20161015, end: 20161027
  3. DIAMICRON [Concomitant]
     Active Substance: GLICLAZIDE
     Dosage: 60 MG, QD
     Route: 048
     Dates: start: 20161015, end: 20161027
  4. METFORMIN [Concomitant]
     Active Substance: METFORMIN HYDROCHLORIDE
     Dosage: 1000 MG, BID
     Dates: end: 20161015
  5. ULTRAVIST [Suspect]
     Active Substance: IOPROMIDE
     Indication: COMPUTERISED TOMOGRAM ABDOMEN
     Dosage: 80 ML, UNK
     Route: 042
     Dates: start: 20161014, end: 20161014
  6. TAZOBAC [Suspect]
     Active Substance: PIPERACILLIN SODIUM\TAZOBACTAM SODIUM
     Dosage: UNK
     Dates: start: 20161025, end: 20161029
  7. MEROPENEM. [Concomitant]
     Active Substance: MEROPENEM
     Dosage: 500 MG, BID
     Dates: start: 20161015
  8. MEROPENEM. [Concomitant]
     Active Substance: MEROPENEM
     Dosage: 1 G, BID
     Dates: start: 20161104
  9. PRAVASTATIN. [Concomitant]
     Active Substance: PRAVASTATIN
     Dosage: 40 MG, QD
     Route: 048
     Dates: start: 20160915, end: 20161015
  10. PHYSIOTENS [Concomitant]
     Active Substance: MOXONIDINE
     Dosage: .4 MG, QD
     Dates: start: 20161020
  11. FRAGMIN [Concomitant]
     Active Substance: DALTEPARIN SODIUM
     Dosage: UNK
     Dates: start: 20160915
  12. DILATREND [Concomitant]
     Active Substance: CARVEDILOL
     Dosage: 25 MG, BID
     Route: 048
  13. BRUFEN [Suspect]
     Active Substance: IBUPROFEN
     Dosage: UNK
     Dates: start: 20160915, end: 20161015
  14. MOVICOL [Concomitant]
     Active Substance: POLYETHYLENE GLYCOL 3350\POTASSIUM CHLORIDE\SODIUM BICARBONATE\SODIUM CHLORIDE
     Dosage: 1 DF, QD
     Route: 048
     Dates: end: 201609
  15. ASPIRIN. [Concomitant]
     Active Substance: ASPIRIN
     Dosage: 100 MG, QD
     Route: 048
  16. METFORMIN [Concomitant]
     Active Substance: METFORMIN HYDROCHLORIDE
     Dosage: 1000 MG, BID
     Dates: end: 20161027
  17. NOVALGINA [Suspect]
     Active Substance: METAMIZOLE SODIUM
     Dosage: 4.5 G, TID
     Route: 041
     Dates: start: 20161025, end: 20161029
  18. NOVALGINA [Suspect]
     Active Substance: METAMIZOLE SODIUM
     Dosage: UNK
     Dates: start: 20161004, end: 20161015
  19. PANTOZOL [Concomitant]
     Active Substance: PANTOPRAZOLE SODIUM
     Dosage: 20 MG, OM
     Dates: start: 2015, end: 20161029
  20. CIPROFLOXACIN. [Suspect]
     Active Substance: CIPROFLOXACIN
     Dosage: 500 MG, BID
     Route: 048
     Dates: start: 20161019, end: 20161025
  21. MEROPENEM. [Concomitant]
     Active Substance: MEROPENEM
     Dosage: 500 MG, BID
     Dates: start: 20161029
  22. MEROPENEM. [Concomitant]
     Active Substance: MEROPENEM
     Dosage: 1 G, TID
     Dates: start: 20161014, end: 20161018
  23. MEROPENEM. [Concomitant]
     Active Substance: MEROPENEM
     Dosage: 500 MG, BID
     Dates: start: 20161029, end: 20161103
  24. NOVALGINA [Suspect]
     Active Substance: METAMIZOLE SODIUM
     Dosage: UNK
     Dates: start: 20160915, end: 20161015
  25. AUGMENTINE [Concomitant]
     Active Substance: AMOXICILLIN\CLAVULANATE POTASSIUM
     Dosage: 2.2 G, TID
     Dates: start: 20160915, end: 20160922
  26. CLOPIDOGREL [Concomitant]
     Active Substance: CLOPIDOGREL BISULFATE
     Dosage: 75 MG, QD
     Route: 048
     Dates: start: 20160915
  27. TAZOBAC [Suspect]
     Active Substance: PIPERACILLIN SODIUM\TAZOBACTAM SODIUM
     Dosage: 4.5 G, TID
     Route: 041
     Dates: start: 20160922, end: 20161014
  28. TAZOBAC [Suspect]
     Active Substance: PIPERACILLIN SODIUM\TAZOBACTAM SODIUM
     Dosage: 4.5 G, BID
     Dates: start: 20161028, end: 20161029
  29. BRUFEN [Suspect]
     Active Substance: IBUPROFEN
     Dosage: UNK
     Dates: end: 201608
  30. AMLODIPIN [Concomitant]
     Active Substance: AMLODIPINE BESYLATE
     Dosage: 10 MG, QD
     Dates: start: 20161018

REACTIONS (1)
  - Tubulointerstitial nephritis [Recovering/Resolving]

NARRATIVE: CASE EVENT DATE: 20161031
